FAERS Safety Report 9721548 (Version 1)
Quarter: 2013Q4

REPORT INFORMATION
  Report Type: Report from Study
  Country: BR (occurrence: BR)
  Receive Date: 20131130
  Receipt Date: 20131130
  Transmission Date: 20140711
  Serious: Yes (Other)
  Sender: FDA-Public Use
  Company Number: PHHY2013BR138589

PATIENT
  Age: 55 Year
  Sex: Female

DRUGS (2)
  1. FORASEQ [Suspect]
     Dosage: UNK UKN, UNK
  2. CAPTOPRIL SANDOZ [Suspect]
     Indication: HYPERTENSION
     Dosage: UNK UKN, BID

REACTIONS (13)
  - Immunodeficiency [Unknown]
  - Rhinitis allergic [Unknown]
  - Hypertension [Unknown]
  - Cough [Unknown]
  - Dyspepsia [Unknown]
  - Regurgitation [Unknown]
  - Fatigue [Unknown]
  - Weight increased [Unknown]
  - Productive cough [Unknown]
  - Wheezing [Unknown]
  - Influenza [Unknown]
  - Obstructive airways disorder [Unknown]
  - Inappropriate schedule of drug administration [Unknown]
